FAERS Safety Report 13598834 (Version 1)
Quarter: 2017Q2

REPORT INFORMATION
  Report Type: Spontaneous
  Country: AU (occurrence: AU)
  Receive Date: 20170531
  Receipt Date: 20170531
  Transmission Date: 20170830
  Serious: Yes (Other)
  Sender: FDA-Public Use
  Company Number: AU-PFIZER INC-HQ1909418APR2002

PATIENT
  Age: 29 Year
  Sex: Female

DRUGS (8)
  1. METHOTREXATE SODIUM. [Suspect]
     Active Substance: METHOTREXATE SODIUM
     Indication: OSTEOSARCOMA
     Dosage: 12 G/M^2
     Route: 042
  2. VANCOMYCIN HCL [Interacting]
     Active Substance: VANCOMYCIN HYDROCHLORIDE
     Indication: STAPHYLOCOCCAL SEPSIS
     Dosage: 1.0 G, 2X/DAY, BEGUN ON DAY 2
     Route: 042
  3. METHOTREXATE SODIUM. [Interacting]
     Active Substance: METHOTREXATE SODIUM
     Dosage: 20 G, CYCLIC
  4. ORAL CONTRACEPTIVE NOS [Concomitant]
     Active Substance: UNSPECIFIED INGREDIENT
  5. IFOSFAMIDE. [Concomitant]
     Active Substance: IFOSFAMIDE
  6. CEFEPIME [Concomitant]
     Active Substance: CEFEPIME HYDROCHLORIDE
     Indication: STAPHYLOCOCCAL SEPSIS
     Dosage: 1 G, 3X/DAY
     Route: 042
  7. VANCOMYCIN HCL [Interacting]
     Active Substance: VANCOMYCIN HYDROCHLORIDE
     Dosage: 750.0 MG, 2X/DAY
     Route: 042
  8. FOLINIC ACID [Concomitant]
     Active Substance: LEUCOVORIN

REACTIONS (4)
  - Drug interaction [Recovered/Resolved]
  - Mucosal inflammation [Unknown]
  - Renal impairment [Recovered/Resolved]
  - Drug level above therapeutic [Recovered/Resolved]
